FAERS Safety Report 6980864-8 (Version None)
Quarter: 2010Q3

REPORT INFORMATION
  Report Type: 
  Country: None (occurrence: None)
  Receive Date: 20100827
  Receipt Date: 20100614
  Transmission Date: 20110219
  Serious: Yes (Other)
  Sender: FDA-Public Use
  Company Number: US-WYE-H15892210

PATIENT
  Age: 8 Year
  Sex: Male
  Weight: 34.05 kg

DRUGS (1)
  1. CHILDREN'S ADVIL [Suspect]
     Indication: TOOTHACHE
     Dosage: 2 TSP 1X PER 1 DAY ORAL
     Route: 048
     Dates: start: 20100612, end: 20100612

REACTIONS (1)
  - LIP SWELLING [None]
